FAERS Safety Report 6583724-X (Version None)
Quarter: 2010Q1

REPORT INFORMATION
  Report Type: 
  Country: None (occurrence: None)
  Receive Date: 20100216
  Receipt Date: 20100204
  Transmission Date: 20100710
  Serious: Yes (Other)
  Sender: FDA-Public Use
  Company Number: NL-GENENTECH-262990

PATIENT
  Age: 40 Year
  Sex: Female
  Weight: 64 kg

DRUGS (4)
  1. OMALIZUMAB [Suspect]
     Indication: ASTHMA
     Dosage: UNK, UNK
     Route: 058
     Dates: start: 20070907
  2. SPIRIVA [Concomitant]
     Indication: ASTHMA
     Dates: start: 20070907
  3. SERETIDE [Concomitant]
     Indication: ASTHMA
     Dosage: 250 UNK, UNK
     Dates: start: 20070907
  4. VENTOLIN [Concomitant]
     Indication: ASTHMA
     Dates: start: 20070907

REACTIONS (3)
  - ABORTION INCOMPLETE [None]
  - DRUG EXPOSURE DURING PREGNANCY [None]
  - INTRA-UTERINE DEATH [None]
